FAERS Safety Report 9072805 (Version 1)
Quarter: 2013Q1

REPORT INFORMATION
  Report Type: Spontaneous
  Country: US (occurrence: US)
  Receive Date: 20130207
  Receipt Date: 20130207
  Transmission Date: 20140127
  Serious: Yes (Hospitalization)
  Sender: FDA-Public Use
  Company Number: US-ASTELLAS-2013US001379

PATIENT
  Age: 10 Year
  Sex: Male
  Weight: 28 kg

DRUGS (7)
  1. PROGRAF [Suspect]
     Indication: HEART TRANSPLANT
     Dosage: 0.04 MG/KG, UID/QD
     Route: 065
  2. METHYLPREDNISOLONE [Concomitant]
     Indication: HEART TRANSPLANT
     Dosage: 10 MG/KG PER DOSE
     Route: 065
  3. ATG                                /00575401/ [Concomitant]
     Indication: HEART TRANSPLANT
     Dosage: UNK
     Route: 065
  4. PREDNISONE [Concomitant]
     Indication: HEART TRANSPLANT
     Dosage: 1 MG/KG, UID/QD
     Route: 065
  5. PREDNISONE [Concomitant]
     Dosage: 0.8 MG/KG, UID/QD
     Route: 065
  6. AZATHIOPRINE [Concomitant]
     Indication: HEART TRANSPLANT
     Dosage: 100 MG, UID/QD
     Route: 065
  7. SEDATIVE MEDICATIONS [Concomitant]
     Indication: PRODUCT USED FOR UNKNOWN INDICATION
     Dosage: UNK
     Route: 065

REACTIONS (3)
  - Cerebral haemorrhage [Recovered/Resolved with Sequelae]
  - Subarachnoid haemorrhage [Recovered/Resolved with Sequelae]
  - Posterior reversible encephalopathy syndrome [Recovered/Resolved with Sequelae]
